FAERS Safety Report 6109121-9 (Version None)
Quarter: 2009Q1

REPORT INFORMATION
  Report Type: 
  Country: None (occurrence: None)
  Receive Date: 20090310
  Receipt Date: 20090227
  Transmission Date: 20090719
  Serious: Yes (Hospitalization, Disabling)
  Sender: FDA-Public Use
  Company Number: US-JNJFOC-20081001225

PATIENT
  Sex: Female
  Weight: 70.31 kg

DRUGS (8)
  1. ORTHO EVRA [Suspect]
     Indication: CONTRACEPTION
     Route: 062
  2. LISINOPRIL [Concomitant]
     Indication: BLOOD PRESSURE
  3. ZETIA [Concomitant]
     Indication: BLOOD CHOLESTEROL
  4. CYMBALTA [Concomitant]
     Indication: ANXIETY
  5. MULTI-VITAMIN [Concomitant]
  6. IMETREX [Concomitant]
  7. TYLENOL [Concomitant]
  8. VICKS DAYQUIL SINUS PRESSURE + PAIN RELIEF W/ IBUPROFEN [Concomitant]

REACTIONS (2)
  - EMBOLIC STROKE [None]
  - MIGRAINE [None]
